FAERS Safety Report 21986044 (Version 1)
Quarter: 2023Q1

REPORT INFORMATION
  Report Type: Spontaneous
  Country: US (occurrence: US)
  Receive Date: 20230213
  Receipt Date: 20230213
  Transmission Date: 20230418
  Serious: No
  Sender: FDA-Public Use
  Company Number: US-AMGEN-USASP2023023627

PATIENT
  Age: 50 Year
  Sex: Female

DRUGS (2)
  1. MVASI [Suspect]
     Active Substance: BEVACIZUMAB-AWWB
     Indication: Ovarian cancer
     Dosage: 1400 MILLIGRAM (USING 3 VIALS OF MVASI 400 MG AND 2 VIALS OF MVASI 100 MG), Q3WK
     Route: 042
     Dates: end: 20221129
  2. MVASI [Suspect]
     Active Substance: BEVACIZUMAB-AWWB
     Indication: Off label use
     Dosage: TREATMENT RESUMED
     Route: 042
     Dates: start: 20230117

REACTIONS (2)
  - Off label use [Unknown]
  - Blood pressure increased [Recovered/Resolved]

NARRATIVE: CASE EVENT DATE: 20221129
